FAERS Safety Report 7480788-6 (Version None)
Quarter: 2011Q2

REPORT INFORMATION
  Report Type: 
  Country: None (occurrence: None)
  Receive Date: 20110512
  Receipt Date: 20110512
  Transmission Date: 20111010
  Serious: Yes (Disabling)
  Sender: FDA-Public Use
  Company Number: None

PATIENT
  Sex: Male
  Weight: 68.0396 kg

DRUGS (2)
  1. ZYPREXA [Suspect]
     Dosage: 10 MG 2 TIME A DAY
     Dates: start: 19971031
  2. ZYPREXA [Suspect]
     Dosage: 10 MG 2 TIME A DAY
     Dates: start: 20101124

REACTIONS (1)
  - LIBIDO DECREASED [None]
